APPROVED DRUG PRODUCT: OLANZAPINE AND FLUOXETINE HYDROCHLORIDE
Active Ingredient: FLUOXETINE HYDROCHLORIDE; OLANZAPINE
Strength: EQ 25MG BASE;EQ 3MG BASE
Dosage Form/Route: CAPSULE;ORAL
Application: A202074 | Product #001 | TE Code: AB
Applicant: TEVA PHARMACEUTICALS USA
Approved: Mar 25, 2013 | RLD: No | RS: No | Type: RX